FAERS Safety Report 7559866-9 (Version None)
Quarter: 2011Q2

REPORT INFORMATION
  Report Type: 
  Country: None (occurrence: None)
  Receive Date: 20110617
  Receipt Date: 20110617
  Transmission Date: 20111010
  Serious: Yes (Other)
  Sender: FDA-Public Use
  Company Number: None

PATIENT
  Age: 74 Year
  Sex: Male
  Weight: 58.9676 kg

DRUGS (1)
  1. LEVAQUIN [Suspect]
     Indication: SINUSITIS
     Dosage: ONE PILL DAILY PO
     Route: 048
     Dates: start: 20110530, end: 20110601

REACTIONS (3)
  - MYALGIA [None]
  - PAIN IN EXTREMITY [None]
  - GROIN PAIN [None]
